FAERS Safety Report 12691310 (Version 3)
Quarter: 2016Q3

REPORT INFORMATION
  Report Type: Spontaneous
  Country: IT (occurrence: IT)
  Receive Date: 20160826
  Receipt Date: 20160916
  Transmission Date: 20161109
  Serious: Yes (Other)
  Sender: FDA-Public Use
  Company Number: PHHY2016IT115017

PATIENT
  Age: 54 Year
  Sex: Female

DRUGS (1)
  1. AMOXICILLIN CLAVULANIC ACID SANDOZ [Suspect]
     Active Substance: AMOXICILLIN\CLAVULANIC ACID
     Indication: PROPHYLAXIS
     Dosage: 1 G, QD
     Route: 048
     Dates: start: 20160812, end: 20160815

REACTIONS (6)
  - Vertigo [Unknown]
  - Diarrhoea [Unknown]
  - Pyrexia [Unknown]
  - Nausea [Unknown]
  - Eye oedema [Unknown]
  - Vomiting [Unknown]

NARRATIVE: CASE EVENT DATE: 20160814
